FAERS Safety Report 7472670-5 (Version None)
Quarter: 2011Q2

REPORT INFORMATION
  Report Type: 
  Country: None (occurrence: None)
  Receive Date: 20110502
  Receipt Date: 20110416
  Transmission Date: 20111010
  Serious: Yes (Congenital Anomaly)
  Sender: FDA-Public Use
  Company Number: 011189

PATIENT

DRUGS (1)
  1. KEPPRA [Suspect]
     Dosage: 3000 MG TRANSPLACENTAL
     Route: 064

REACTIONS (7)
  - CONGENITAL ANOMALY [None]
  - CLEFT LIP AND PALATE [None]
  - SPINAL DEFORMITY [None]
  - TALIPES [None]
  - ABORTION [None]
  - MATERNAL DRUGS AFFECTING FOETUS [None]
  - SPINA BIFIDA [None]
